FAERS Safety Report 20579772 (Version 1)
Quarter: 2022Q1

REPORT INFORMATION
  Report Type: Spontaneous
  Country: US (occurrence: US)
  Receive Date: 20220310
  Receipt Date: 20220310
  Transmission Date: 20220423
  Serious: No
  Sender: FDA-Public Use
  Company Number: US-OptiNose US, Inc-2020OPT000761

PATIENT
  Age: 65 Year
  Sex: Female

DRUGS (1)
  1. XHANCE [Suspect]
     Active Substance: FLUTICASONE PROPIONATE
     Indication: Nasal polyps
     Route: 045
     Dates: start: 20201001

REACTIONS (3)
  - Nausea [Unknown]
  - Headache [Unknown]
  - Toothache [Unknown]

NARRATIVE: CASE EVENT DATE: 20201020
